FAERS Safety Report 16349193 (Version 3)
Quarter: 2019Q3

REPORT INFORMATION
  Report Type: Spontaneous
  Country: US (occurrence: US)
  Receive Date: 20190523
  Receipt Date: 20190812
  Transmission Date: 20191004
  Serious: Yes (Hospitalization)
  Sender: FDA-Public Use
  Company Number: US-VERTEX PHARMACEUTICALS-2019-004584

PATIENT
  Age: 8 Year
  Sex: Female

DRUGS (11)
  1. ONFI [Concomitant]
     Active Substance: CLOBAZAM
  2. VIMPAT [Concomitant]
     Active Substance: LACOSAMIDE
  3. LAMICTAL [Concomitant]
     Active Substance: LAMOTRIGINE
  4. PROVENTIL [SALBUTAMOL SULFATE] [Concomitant]
  5. PREVACID [Concomitant]
     Active Substance: LANSOPRAZOLE
  6. PULMOZYME [Concomitant]
     Active Substance: DORNASE ALFA
  7. ORKAMBI [Suspect]
     Active Substance: IVACAFTOR\LUMACAFTOR
     Indication: CYSTIC FIBROSIS
     Dosage: 2 PACKETS (100/125 MG GRANULES), BID
     Route: 048
     Dates: start: 20190327
  8. PERTZYE [Concomitant]
     Active Substance: PANCRELIPASE AMYLASE\PANCRELIPASE LIPASE\PANCRELIPASE PROTEASE
  9. VIOKACE [Concomitant]
     Active Substance: PANCRELIPASE AMYLASE\PANCRELIPASE LIPASE\PANCRELIPASE PROTEASE
  10. ZOLOFT [Concomitant]
     Active Substance: SERTRALINE HYDROCHLORIDE
  11. ZYRTEC [Concomitant]
     Active Substance: CETIRIZINE HYDROCHLORIDE

REACTIONS (3)
  - Infective pulmonary exacerbation of cystic fibrosis [Unknown]
  - Staphylococcal infection [Unknown]
  - Seizure [Unknown]

NARRATIVE: CASE EVENT DATE: 201905
